FAERS Safety Report 11327575 (Version 1)
Quarter: 2015Q3

REPORT INFORMATION
  Report Type: Spontaneous
  Country: DE (occurrence: DE)
  Receive Date: 20150731
  Receipt Date: 20150731
  Transmission Date: 20151125
  Serious: Yes (Other)
  Sender: FDA-Public Use
  Company Number: GXKR2015DE003592

PATIENT

DRUGS (6)
  1. LITHIUM ^APOGEPHA^ [Concomitant]
     Indication: PRODUCT USED FOR UNKNOWN INDICATION
     Dosage: 450 MG, QD
     Dates: start: 20130618, end: 20130620
  2. BUPROPION. [Suspect]
     Active Substance: BUPROPION
     Indication: PRODUCT USED FOR UNKNOWN INDICATION
     Dosage: 150 MG, QD
     Dates: start: 20130319
  3. QUILONUM [Concomitant]
     Active Substance: LITHIUM CARBONATE
     Indication: PRODUCT USED FOR UNKNOWN INDICATION
     Dosage: 900 MG, QD
     Dates: start: 20130621
  4. SEROQUEL [Interacting]
     Active Substance: QUETIAPINE FUMARATE
     Indication: BIPOLAR I DISORDER
     Dosage: 200 MG, QD
     Dates: start: 20130319, end: 20130626
  5. SEROQUEL [Interacting]
     Active Substance: QUETIAPINE FUMARATE
     Dosage: 100 MG, QD
     Dates: start: 20130626, end: 20130702
  6. SEROQUEL [Interacting]
     Active Substance: QUETIAPINE FUMARATE
     Dosage: 50 MG, QD
     Dates: start: 20130702, end: 20130705

REACTIONS (3)
  - Somnambulism [Recovering/Resolving]
  - Sexual dysfunction [Recovering/Resolving]
  - Urinary incontinence [Recovering/Resolving]

NARRATIVE: CASE EVENT DATE: 20130626
